FAERS Safety Report 8987841 (Version 1)
Quarter: 2012Q4

REPORT INFORMATION
  Report Type: 
  Country: US (occurrence: US)
  Receive Date: 20121227
  Receipt Date: 20121227
  Transmission Date: 20130627
  Serious: Yes (Hospitalization)
  Sender: FDA-Public Use
  Company Number: US-GLAXOSMITHKLINE-A1006076A

PATIENT
  Age: 72 Year
  Sex: Male

DRUGS (5)
  1. ADVAIR [Suspect]
     Indication: CHRONIC OBSTRUCTIVE PULMONARY DISEASE
     Dosage: 1PUFF Twice per day
     Route: 055
     Dates: start: 20080901
  2. PRO-AIR [Concomitant]
  3. SPIRIVA [Concomitant]
  4. LOSARTAN [Concomitant]
  5. LISINOPRIL [Concomitant]

REACTIONS (6)
  - Visual acuity reduced [Not Recovered/Not Resolved]
  - Vision blurred [Not Recovered/Not Resolved]
  - Dyspnoea [Unknown]
  - Electrocardiogram abnormal [Unknown]
  - Cardiac stress test abnormal [Unknown]
  - Drug ineffective [Unknown]
